FAERS Safety Report 6284772-X (Version None)
Quarter: 2009Q3

REPORT INFORMATION
  Report Type: 
  Country: None (occurrence: None)
  Receive Date: 20090727
  Receipt Date: 20090716
  Transmission Date: 20100115
  Serious: Yes (Other)
  Sender: FDA-Public Use
  Company Number: PHHY2009JP28180

PATIENT
  Age: 33 Year
  Sex: Female

DRUGS (3)
  1. CYCLOSPORINE [Suspect]
     Indication: RENAL TRANSPLANT
     Dosage: UNK
  2. MIZORIBINE [Concomitant]
     Indication: RENAL TRANSPLANT
  3. PREDNISOLONE [Concomitant]
     Indication: RENAL TRANSPLANT

REACTIONS (7)
  - BODY MASS INDEX INCREASED [None]
  - DIABETES MELLITUS [None]
  - HYPERLIPIDAEMIA [None]
  - MENTAL RETARDATION [None]
  - RENAL FAILURE CHRONIC [None]
  - RENAL IMPAIRMENT [None]
  - WEIGHT INCREASED [None]
